FAERS Safety Report 8414918-6 (Version None)
Quarter: 2012Q2

REPORT INFORMATION
  Report Type: 
  Country: None (occurrence: None)
  Receive Date: 20120606
  Receipt Date: 20120528
  Transmission Date: 20120825
  Serious: Yes (Hospitalization, Other)
  Sender: FDA-Public Use
  Company Number: JP-VERTEX PHARMACEUTICALS INC.-AE-2012-003278

PATIENT
  Age: 59 Year
  Sex: Female

DRUGS (22)
  1. MOTILIUM [Concomitant]
     Route: 048
     Dates: start: 20120412
  2. PEGINTERFERON ALFA-2B [Concomitant]
     Route: 051
     Dates: start: 20120301, end: 20120301
  3. TELAVIC (TELAPREVIR) [Suspect]
     Route: 048
     Dates: start: 20120302, end: 20120307
  4. TELAVIC (TELAPREVIR) [Suspect]
     Route: 048
     Dates: start: 20120514
  5. PEGINTERFERON ALFA-2B [Concomitant]
     Route: 051
     Dates: start: 20120329, end: 20120419
  6. REBETOL [Concomitant]
     Indication: HEPATITIS C
     Route: 048
     Dates: start: 20120221, end: 20120225
  7. REBETOL [Concomitant]
     Route: 048
     Dates: start: 20120521
  8. REBAMIPIDE [Concomitant]
     Route: 048
     Dates: start: 20111128
  9. TELAVIC (TELAPREVIR) [Suspect]
     Indication: HEPATITIS C
     Route: 048
     Dates: start: 20120221, end: 20120225
  10. REBETOL [Concomitant]
     Route: 048
     Dates: start: 20120405, end: 20120412
  11. LOXONIN [Concomitant]
     Route: 048
     Dates: start: 20120225
  12. TELAVIC (TELAPREVIR) [Suspect]
     Route: 048
     Dates: start: 20120308, end: 20120412
  13. PEGINTERFERON ALFA-2B [Concomitant]
     Indication: HEPATITIS C
     Route: 051
     Dates: start: 20120221, end: 20120221
  14. PEGINTERFERON ALFA-2B [Concomitant]
     Route: 051
     Dates: start: 20120308, end: 20120322
  15. PEGINTERFERON ALFA-2B [Concomitant]
     Route: 051
     Dates: start: 20120510, end: 20120519
  16. REBETOL [Concomitant]
     Route: 048
     Dates: start: 20120514, end: 20120520
  17. REBETOL [Concomitant]
     Route: 048
     Dates: start: 20120229, end: 20120307
  18. REBETOL [Concomitant]
     Route: 048
     Dates: start: 20120308, end: 20120404
  19. ALLEGRA [Concomitant]
     Route: 048
     Dates: start: 20120405
  20. PEGINTERFERON ALFA-2B [Concomitant]
     Route: 051
     Dates: start: 20120517
  21. REBETOL [Concomitant]
     Route: 048
     Dates: start: 20120228, end: 20120228
  22. PROMACTA [Concomitant]
     Route: 048
     Dates: start: 20060724

REACTIONS (6)
  - SOMNOLENCE [None]
  - OEDEMA PERIPHERAL [None]
  - ANAEMIA [None]
  - DIARRHOEA [None]
  - DELIRIUM [None]
  - HYPOALBUMINAEMIA [None]
